FAERS Safety Report 6026731-8 (Version None)
Quarter: 2008Q4

REPORT INFORMATION
  Report Type: 
  Country: None (occurrence: None)
  Receive Date: 20081222
  Receipt Date: 20081106
  Transmission Date: 20090506
  Serious: No
  Sender: FDA-Public Use
  Company Number: US-WYE-H06769108

PATIENT

DRUGS (1)
  1. PRISTIQ [Suspect]
     Dosage: DOSES FROM 50 MG TO 300 MG, FREQUENCY UNKNOWN

REACTIONS (2)
  - DIZZINESS [None]
  - DRUG WITHDRAWAL SYNDROME [None]
